FAERS Safety Report 6540549-9 (Version None)
Quarter: 2010Q1

REPORT INFORMATION
  Report Type: 
  Country: None (occurrence: None)
  Receive Date: 20100118
  Receipt Date: 20100107
  Transmission Date: 20100710
  Serious: Yes (Death, Life-Threatening)
  Sender: FDA-Public Use
  Company Number: DE-RANBAXY-2010RR-30353

PATIENT
  Age: 61 Year
  Sex: Male
  Weight: 70 kg

DRUGS (32)
  1. SIMVASTATIN [Suspect]
     Dosage: 20 MG, UNK
     Route: 048
     Dates: start: 20091025, end: 20091027
  2. ARIXTRA [Suspect]
     Dosage: 2.5 MG, UNK
     Route: 058
     Dates: start: 20091020, end: 20091028
  3. ASPIRIN [Suspect]
     Dosage: 100 MG, UNK
     Route: 048
     Dates: start: 20091020, end: 20091028
  4. AGOPTON 15 [Suspect]
     Dosage: 15 MG, UNK
     Route: 048
     Dates: start: 20091020, end: 20091028
  5. FINLEPSIN 200 RETARD [Suspect]
     Dosage: 200 MG, TID
     Route: 048
     Dates: start: 20091020, end: 20091028
  6. METOPROLOL SUCCINATE [Suspect]
     Dosage: 47.5 MG AND 23.25 MG
     Route: 048
     Dates: start: 20091020, end: 20091024
  7. TAVOR 1.0 [Suspect]
     Dosage: 1 MG, UNK
     Route: 048
     Dates: start: 20091020, end: 20091026
  8. TAVOR 1.0 [Suspect]
     Dosage: 1 MG, BID
     Route: 048
     Dates: start: 20091027
  9. DELIX 2.5 TABLETTEN [Suspect]
     Dosage: 2.5 MG, UNK
     Route: 048
     Dates: start: 20091021, end: 20091024
  10. ZOPICLONE [Suspect]
     Dosage: 7.5 MG, UNK
     Route: 048
     Dates: start: 20091020, end: 20091026
  11. EUNERPAN LOSUNG [Suspect]
     Dosage: UNK
     Dates: start: 20091020, end: 20091027
  12. HAEMITON 0.075 [Suspect]
     Dosage: 0.075 MG, BID
     Route: 048
     Dates: start: 20091020, end: 20091024
  13. TOREM 10 [Suspect]
     Dosage: 10 MG, TID
     Route: 048
     Dates: start: 20091020
  14. TOREM 10 [Suspect]
     Dosage: 10 MG, BID
     Route: 048
     Dates: start: 20091021, end: 20091022
  15. TOREM 10 [Suspect]
     Dosage: 10 MG, UNK
     Route: 048
     Dates: start: 20091023, end: 20091026
  16. TOREM 10 [Suspect]
     Dosage: 10 MG, TID
     Route: 048
     Dates: start: 20091027
  17. ARTERENOL 10 MG/50 ML NACL 0.9% [Suspect]
     Dosage: UNK
     Route: 042
     Dates: start: 20091025
  18. ARTERENOL 10 MG/50 ML NACL 0.9% [Suspect]
     Dosage: UNK
     Dates: start: 20091028
  19. 1 G SULBACTAM/PIPERACILLIN [Suspect]
     Dosage: 1 G, TID
     Route: 042
     Dates: start: 20091025, end: 20091027
  20. FLUNITRAZEPAM 1 MG [Suspect]
     Dosage: 1 MG, UNK
     Dates: start: 20091028
  21. FUROSEMIDE [Suspect]
     Dosage: 20 MG, TID
     Route: 042
     Dates: start: 20091028
  22. ZIENAM 1 GR [Suspect]
     Dosage: 1 G, TID
     Dates: start: 20091028
  23. BERLINSULIN H [Concomitant]
     Dosage: 10 8 10 10 10 IE
     Route: 058
     Dates: start: 20091020
  24. BERLINSULIN H [Concomitant]
     Dosage: 6 6 6 4 IE
     Route: 058
     Dates: start: 20091021, end: 20091025
  25. BERLINSULIN H [Concomitant]
     Dosage: 10 16 14 10 IE
     Route: 058
     Dates: start: 20091027, end: 20091028
  26. BERLINSULIN B [Concomitant]
     Dosage: 8 0 0 14 IE
     Route: 058
     Dates: start: 20091020, end: 20091021
  27. NAC 600 [Concomitant]
     Dosage: 600 MG, UNK
     Route: 048
     Dates: start: 20091020, end: 20091028
  28. KALINOR-BRAUSETABLETTEN [Concomitant]
     Dosage: UNK
     Route: 048
     Dates: start: 20091021, end: 20091023
  29. KALINOR-BRAUSETABLETTEN [Concomitant]
     Dosage: UNK
     Route: 048
     Dates: start: 20091024
  30. KALINOR-BRAUSETABLETTEN [Concomitant]
     Dosage: UNK
     Route: 048
     Dates: start: 20091025
  31. KALINOR-BRAUSETABLETTEN [Concomitant]
     Dosage: UNK
     Route: 048
     Dates: start: 20091026
  32. KALINOR-BRAUSETABLETTEN [Concomitant]
     Dosage: UNK
     Route: 048
     Dates: start: 20091027

REACTIONS (3)
  - RENAL FAILURE ACUTE [None]
  - RHABDOMYOLYSIS [None]
  - URINE COLOUR ABNORMAL [None]
